FAERS Safety Report 8990285 (Version 3)
Quarter: 2013Q1

REPORT INFORMATION
  Report Type: Spontaneous
  Country: US (occurrence: US)
  Receive Date: 20121228
  Receipt Date: 20130306
  Transmission Date: 20140127
  Serious: Yes (Death, Hospitalization)
  Sender: FDA-Public Use
  Company Number: US-GILEAD-2012-0067056

PATIENT
  Sex: Female

DRUGS (3)
  1. LETAIRIS [Suspect]
     Indication: PULMONARY ARTERIAL HYPERTENSION
     Dosage: 10 MG, QD
     Route: 048
     Dates: start: 20110713, end: 201301
  2. LETAIRIS [Suspect]
     Dates: start: 20110713
  3. LETAIRIS [Suspect]
     Dates: start: 20110712

REACTIONS (3)
  - Pneumonia [Fatal]
  - Sepsis [Fatal]
  - Respiratory failure [Fatal]
